FAERS Safety Report 26058249 (Version 1)
Quarter: 2025Q4

REPORT INFORMATION
  Report Type: Spontaneous
  Country: JP (occurrence: JP)
  Receive Date: 20251118
  Receipt Date: 20251118
  Transmission Date: 20260117
  Serious: Yes (Hospitalization, Other)
  Sender: BRISTOL-MYERS SQUIBB COMPANY
  Company Number: JP-BRISTOL-MYERS SQUIBB COMPANY-2025-153952

PATIENT
  Age: 9 Decade
  Sex: Male

DRUGS (3)
  1. YERVOY [Suspect]
     Active Substance: IPILIMUMAB
     Indication: Oesophageal carcinoma recurrent
     Dosage: ONE COURSE ONLY
     Route: 041
     Dates: start: 202405, end: 202405
  2. OPDIVO [Suspect]
     Active Substance: NIVOLUMAB
     Indication: Oesophageal carcinoma recurrent
     Dosage: 1 COURSE
     Route: 041
     Dates: start: 202405, end: 202405
  3. OPDIVO [Suspect]
     Active Substance: NIVOLUMAB
     Dosage: 1 COURSE AFTER RESUMPTION
     Route: 041
     Dates: start: 202407, end: 202407

REACTIONS (2)
  - Rash [Recovered/Resolved]
  - Pemphigoid [Recovered/Resolved with Sequelae]

NARRATIVE: CASE EVENT DATE: 20240501
